FAERS Safety Report 8362241 (Version 3)
Quarter: 2013Q3

REPORT INFORMATION
  Report Type: Report from Study
  Country: JP (occurrence: JP)
  Receive Date: 20120130
  Receipt Date: 20130805
  Transmission Date: 20140515
  Serious: Yes (Disabling)
  Sender: FDA-Public Use
  Company Number: JP-GLAXOSMITHKLINE-B0776753A

PATIENT
  Age: 74 Year
  Sex: Male
  Weight: 66 kg

DRUGS (2)
  1. REVOLADE [Suspect]
     Indication: IMMUNE THROMBOCYTOPENIC PURPURA
     Route: 048
     Dates: start: 20111216, end: 20120119
  2. LOXONIN [Concomitant]
     Indication: BACK PAIN
     Route: 062

REACTIONS (1)
  - Cerebral infarction [Recovered/Resolved with Sequelae]
